FAERS Safety Report 7732549-8 (Version None)
Quarter: 2011Q3

REPORT INFORMATION
  Report Type: 
  Country: None (occurrence: None)
  Receive Date: 20110906
  Receipt Date: 20110825
  Transmission Date: 20111222
  Serious: Yes (Other)
  Sender: FDA-Public Use
  Company Number: US-ASTRAZENECA-2011SE00160

PATIENT
  Age: 84 Year
  Sex: Female

DRUGS (3)
  1. ACCOLATE [Suspect]
     Route: 048
  2. CRESTOR [Suspect]
     Route: 048
  3. PULMICORT [Suspect]
     Route: 055

REACTIONS (7)
  - ASTHMA [None]
  - PAIN [None]
  - CONFUSIONAL STATE [None]
  - SPINAL FRACTURE [None]
  - INCORRECT DOSE ADMINISTERED [None]
  - FALL [None]
  - HEARING IMPAIRED [None]
